FAERS Safety Report 9164966 (Version 2)
Quarter: 2013Q2

REPORT INFORMATION
  Report Type: Spontaneous
  Country: GB (occurrence: None)
  Receive Date: 20130228
  Receipt Date: 20130502
  Transmission Date: 20140414
  Serious: Yes (Other)
  Sender: FDA-Public Use
  Company Number: AUR-APL-2013-01681

PATIENT
  Age: 52 Year
  Sex: Female

DRUGS (7)
  1. MIRTAZAPINE [Suspect]
     Indication: PRODUCT USED FOR UNKNOWN INDICATION
  2. INCIVO [Suspect]
     Indication: HEPATITIS C
     Dosage: 2250 MG (750 MG, 3 IN 1 D) ORAL
     Route: 048
     Dates: start: 20121001
  3. PEGINTERFERON ALFA-2B [Suspect]
     Dosage: (1 IN 1 WK), SUBCUTANEOUS
     Route: 058
     Dates: start: 20121001
  4. RIBAVIRIN (RIBAVIRIN) [Concomitant]
     Dosage: ((2 IN  1D) ORAL
     Route: 048
     Dates: start: 20121001
  5. EMTRICITABINE [Concomitant]
     Dosage: (2 IN 1 D), ORAL
     Dates: start: 20121001
  6. RILPIVIRINE [Concomitant]
  7. TENOFOVIR [Concomitant]

REACTIONS (11)
  - Insomnia [None]
  - Skin disorder [None]
  - Fatigue [None]
  - Depressed mood [None]
  - Hallucination [None]
  - Disorientation [None]
  - Abnormal dreams [None]
  - Confusional state [None]
  - Haemoglobin decreased [None]
  - Musculoskeletal pain [None]
  - Vomiting [None]
